FAERS Safety Report 12057407 (Version 3)
Quarter: 2016Q4

REPORT INFORMATION
  Report Type: Spontaneous
  Country: JP (occurrence: JP)
  Receive Date: 20160210
  Receipt Date: 20161107
  Transmission Date: 20170206
  Serious: Yes (Other)
  Sender: FDA-Public Use
  Company Number: JP-VIFOR (INTERNATIONAL) INC.-VIT-2016-00509

PATIENT
  Age: 74 Year
  Sex: Male
  Weight: 64 kg

DRUGS (8)
  1. LASIX [Concomitant]
     Active Substance: FUROSEMIDE
     Indication: HYPERTENSION
     Route: 048
     Dates: start: 20140928
  2. FERROUS CITRATE [Concomitant]
     Active Substance: FERROUS CITRATE
     Indication: DIABETIC NEPHROPATHY
     Route: 048
     Dates: start: 20150813
  3. MICAMLO [Concomitant]
     Active Substance: AMLODIPINE BESYLATE\TELMISARTAN
     Indication: HYPERTENSION
     Route: 048
     Dates: start: 20150910
  4. MIRCERA [Suspect]
     Active Substance: METHOXY POLYETHYLENE GLYCOL-EPOETIN BETA
     Indication: NEPHROGENIC ANAEMIA
     Route: 058
     Dates: start: 20150312
  5. ALDACTONE A [Concomitant]
     Active Substance: SPIRONOLACTONE
     Indication: HYPERTENSION
     Route: 048
     Dates: start: 20150827
  6. ALFACALCIDOL [Concomitant]
     Active Substance: ALFACALCIDOL
     Indication: BONE METABOLISM DISORDER
     Route: 048
     Dates: start: 20141115
  7. LUNESTA [Concomitant]
     Active Substance: ESZOPICLONE
     Indication: INSOMNIA
     Route: 048
     Dates: start: 20141117
  8. CERA [Concomitant]

REACTIONS (6)
  - Staphylococcal infection [Not Recovered/Not Resolved]
  - Vitamin B1 deficiency [Not Recovered/Not Resolved]
  - Aplasia pure red cell [Unknown]
  - Folate deficiency [Not Recovered/Not Resolved]
  - Catheter site related reaction [Not Recovered/Not Resolved]
  - Anaemia [Not Recovered/Not Resolved]

NARRATIVE: CASE EVENT DATE: 20151008
